FAERS Safety Report 4906159-1 (Version None)
Quarter: 2006Q1

REPORT INFORMATION
  Report Type: 
  Country: None (occurrence: None)
  Receive Date: 20060207
  Receipt Date: 20060207
  Transmission Date: 20060701
  Serious: Yes (Hospitalization)
  Sender: FDA-Public Use
  Company Number: None

PATIENT
  Age: 70 Year
  Sex: Male
  Weight: 86.637 kg

DRUGS (29)
  1. VALSARTAN [Suspect]
     Indication: CARDIAC FAILURE CONGESTIVE
     Dosage: 160 MG DAILY
     Dates: end: 20050601
  2. VALSARTAN [Suspect]
     Indication: COUGH
     Dosage: 160 MG DAILY
     Dates: end: 20050601
  3. ALBUTEROL 3/ IPRATROP 0.5MG/3ML [Concomitant]
  4. ALBUTEROL 90/ IPRATROP 18MCG [Concomitant]
  5. ALCOHOL PREP [Concomitant]
  6. ALLOPURINOL [Concomitant]
  7. CARVEDILIL [Concomitant]
  8. CLOTRIMAZOLE [Concomitant]
  9. LANOXIN [Concomitant]
  10. DM 10/GUAIFENESN [Concomitant]
  11. DOCUSATE CA [Concomitant]
  12. FLUNISOLIDE [Concomitant]
  13. FORMOTEROL FUMARATE [Concomitant]
  14. FUROSEMIDE [Concomitant]
  15. GEMFIBROZIL [Concomitant]
  16. HYDROCODONE 7.5/ACETAMINOPHEN 500 MG [Concomitant]
  17. HYDROPHILIC TOP OINT INSULIN [Concomitant]
  18. NOVOLIN 70/30(NPH/REG) [Concomitant]
  19. HUMULIN R [Concomitant]
  20. INSULIN SYRINGE [Concomitant]
  21. ISOSORBIDE DINITRATE [Concomitant]
  22. KETOCONOZOLE 2% [Concomitant]
  23. LANCET/TECHLITE [Concomitant]
  24. NITROGLYCERIN 0.4MG SL [Concomitant]
  25. PANTOPRAZOLE NA [Concomitant]
  26. PREDNISOLONE ACETATE OPHTHALMIC SUSPENSION/DROPS [Concomitant]
  27. SENNOSIDES 8.6MG [Concomitant]
  28. VALSARTAN [Concomitant]
  29. COUMADIN [Concomitant]

REACTIONS (1)
  - HYPERKALAEMIA [None]
